FAERS Safety Report 14517306 (Version 1)
Quarter: 2018Q1

REPORT INFORMATION
  Report Type: Spontaneous
  Country: FR (occurrence: FR)
  Receive Date: 20180212
  Receipt Date: 20180212
  Transmission Date: 20180509
  Serious: Yes (Hospitalization)
  Sender: FDA-Public Use
  Company Number: FR-CONCORDIA PHARMACEUTICALS INC.-E2B_00009827

PATIENT
  Age: 49 Year
  Sex: Female
  Weight: 110 kg

DRUGS (10)
  1. LAROXYL 50 MG, COMPRIM? PELLICUL? [Concomitant]
     Indication: POLYNEUROPATHY
  2. SULFARLEM [Concomitant]
     Active Substance: ANETHOLTRITHION
     Indication: APTYALISM
  3. SKENAN [Concomitant]
     Active Substance: MORPHINE SULFATE
     Indication: ANALGESIC INTERVENTION SUPPORTIVE THERAPY
     Dates: start: 201501
  4. COUMADINE [Concomitant]
     Active Substance: WARFARIN SODIUM
     Indication: PULMONARY EMBOLISM
  5. ATENOLOL. [Concomitant]
     Active Substance: ATENOLOL
     Indication: SINUS TACHYCARDIA
  6. PREDNISOLONE. [Suspect]
     Active Substance: PREDNISOLONE
     Indication: BACK PAIN
     Route: 014
     Dates: start: 20160307, end: 20160309
  7. FUROSEMIDE. [Concomitant]
     Active Substance: FUROSEMIDE
     Indication: AORTIC VALVE INCOMPETENCE
  8. RIVOTRIL [Concomitant]
     Active Substance: CLONAZEPAM
     Indication: POLYNEUROPATHY
  9. NEURONTIN [Concomitant]
     Active Substance: GABAPENTIN
     Indication: POLYNEUROPATHY
  10. ACUPAN [Concomitant]
     Active Substance: NEFOPAM HYDROCHLORIDE
     Indication: ANALGESIC INTERVENTION SUPPORTIVE THERAPY

REACTIONS (1)
  - Secondary adrenocortical insufficiency [Recovering/Resolving]

NARRATIVE: CASE EVENT DATE: 20160630
